FAERS Safety Report 4906799-X (Version None)
Quarter: 2006Q1

REPORT INFORMATION
  Report Type: 
  Country: None (occurrence: None)
  Receive Date: 20060207
  Receipt Date: 20060123
  Transmission Date: 20060701
  Serious: Yes (Death)
  Sender: FDA-Public Use
  Company Number: S05-PRT-05744-01

PATIENT
  Age: 31 Year
  Sex: Male

DRUGS (6)
  1. CIPRALEX (ESCITALOPRAM) [Suspect]
     Dates: start: 20051213, end: 20051217
  2. ILLICIT DRUGS [Concomitant]
  3. METHADONE [Concomitant]
  4. MIRTAZAPINE [Concomitant]
  5. OXAZEPAM [Concomitant]
  6. TRIAZOLAM [Concomitant]

REACTIONS (1)
  - DRUG ABUSER [None]
